FAERS Safety Report 9921036 (Version 2)
Quarter: 2014Q2

REPORT INFORMATION
  Report Type: Spontaneous
  Country: GB (occurrence: GB)
  Receive Date: 20140225
  Receipt Date: 20140528
  Transmission Date: 20141212
  Serious: Yes (Death, Hospitalization, Other)
  Sender: FDA-Public Use
  Company Number: GB-AMGEN-GBRSP2014012907

PATIENT
  Age: 56 Year
  Sex: Female
  Weight: 51.5 kg

DRUGS (17)
  1. ENBREL [Suspect]
     Indication: RHEUMATOID ARTHRITIS
     Dosage: 50 MG, WEEKLY
     Route: 058
     Dates: start: 20120701, end: 20131218
  2. CLOPIDOGREL [Concomitant]
     Dosage: UNK
  3. CYCLIZINE [Concomitant]
     Dosage: UNK
  4. DIAZEPAM [Concomitant]
     Dosage: UNK
  5. DIHYDROCODEINE [Concomitant]
     Dosage: UNK
  6. DOSULEPIN [Concomitant]
     Dosage: UNK
  7. ESTRADIOL [Concomitant]
     Dosage: UNK
  8. FOLIC ACID [Concomitant]
     Dosage: UNK
  9. LACTULOSE [Concomitant]
     Dosage: UNK
  10. LANSOPRAZOLE [Concomitant]
     Dosage: UNK
  11. LORATADINE [Concomitant]
     Dosage: UNK
  12. METHOCARBAMOL [Concomitant]
     Dosage: UNK
  13. PREDNISOLONE [Concomitant]
     Dosage: UNK
  14. RAMIPRIL [Concomitant]
     Dosage: UNK
  15. SALBUTAMOL [Concomitant]
     Dosage: UNK
  16. SENNA                              /00142201/ [Concomitant]
     Dosage: UNK
  17. SIMVASTATIN [Concomitant]
     Dosage: UNK

REACTIONS (2)
  - Respiratory failure [Fatal]
  - Pneumonia [Fatal]
